FAERS Safety Report 13278313 (Version 2)
Quarter: 2017Q1

REPORT INFORMATION
  Report Type: Spontaneous
  Country: US (occurrence: US)
  Receive Date: 20170228
  Receipt Date: 20170303
  Transmission Date: 20170428
  Serious: No
  Sender: FDA-Public Use
  Company Number: US-GILEAD-2017-0259721

PATIENT
  Age: 59 Year
  Sex: Female

DRUGS (3)
  1. DESCOVY [Suspect]
     Active Substance: EMTRICITABINE\TENOFOVIR ALAFENAMIDE FUMARATE
     Indication: HIV INFECTION
     Dosage: UNK
     Route: 065
     Dates: start: 201608
  2. COCONUT OIL [Concomitant]
     Active Substance: COCONUT OIL
     Indication: WEIGHT DECREASED
     Dosage: UNK
     Dates: start: 201608
  3. MCT [Concomitant]
     Indication: WEIGHT DECREASED
     Dosage: UNK
     Dates: start: 201608

REACTIONS (6)
  - Lipoatrophy [Unknown]
  - Peripheral swelling [Recovering/Resolving]
  - Neuralgia [Recovering/Resolving]
  - Paraesthesia [Not Recovered/Not Resolved]
  - Weight decreased [Unknown]
  - Muscle spasms [Recovering/Resolving]

NARRATIVE: CASE EVENT DATE: 201702
